FAERS Safety Report 6390868-4 (Version None)
Quarter: 2009Q4

REPORT INFORMATION
  Report Type: 
  Country: None (occurrence: None)
  Receive Date: 20091003
  Receipt Date: 20090917
  Transmission Date: 20100525
  Serious: Yes (Other)
  Sender: FDA-Public Use
  Company Number: AUR-APL-2009-00682

PATIENT
  Sex: Female

DRUGS (9)
  1. ONDANSETRON INJECTABLE [Suspect]
     Dosage: 4 MG, IV
     Route: 042
  2. ATRACURIUM [Concomitant]
  3. CEFTRIAXONE [Concomitant]
  4. DEXAMETHASONE 0.5MG TAB [Concomitant]
  5. METRONIDAZOLE [Concomitant]
  6. MORPHINE [Concomitant]
  7. PARACETAMOL [Concomitant]
  8. PROPOFOL [Concomitant]
  9. REMIFENTANIL [Concomitant]

REACTIONS (2)
  - DYSTONIA [None]
  - MUSCLE SPASMS [None]
